FAERS Safety Report 11442094 (Version 1)
Quarter: 2015Q3

REPORT INFORMATION
  Report Type: Spontaneous
  Country: FR (occurrence: FR)
  Receive Date: 20150901
  Receipt Date: 20150901
  Transmission Date: 20151125
  Serious: Yes (Hospitalization)
  Sender: FDA-Public Use
  Company Number: FR-GLAXOSMITHKLINE-FR2015GSK123373

PATIENT
  Age: 58 Year
  Sex: Female

DRUGS (7)
  1. POLARAMINE [Concomitant]
     Active Substance: DEXCHLORPHENIRAMINE MALEATE
     Indication: PREMEDICATION
     Dosage: 5 MG, SINGLE
     Dates: start: 20150602, end: 20150602
  2. ZELITREX [Suspect]
     Active Substance: VALACYCLOVIR HYDROCHLORIDE
     Indication: ORAL HERPES
     Dosage: 1000 MG, TID
     Route: 048
     Dates: start: 20150602, end: 20150603
  3. MABTHERA [Suspect]
     Active Substance: RITUXIMAB
     Indication: RHEUMATOID ARTHRITIS
     Dosage: 1000 MG, SINGLE
     Route: 042
     Dates: start: 20150602
  4. METHYLPREDNISOLONE. [Concomitant]
     Active Substance: METHYLPREDNISOLONE
     Indication: PREMEDICATION
     Dosage: 120 G, SINGLE
     Route: 042
     Dates: start: 20150602, end: 20150602
  5. LEVOCETIRIZINE [Concomitant]
     Active Substance: LEVOCETIRIZINE
     Dosage: UNK
  6. VALACICLOVIR [Suspect]
     Active Substance: VALACYCLOVIR HYDROCHLORIDE
     Indication: ORAL HERPES
     Dosage: 1000 MG, TID
     Route: 048
     Dates: start: 20150603, end: 20150610
  7. CORTANCYL [Concomitant]
     Active Substance: PREDNISONE

REACTIONS (2)
  - Urticaria [Recovered/Resolved with Sequelae]
  - Vascular purpura [Recovered/Resolved]

NARRATIVE: CASE EVENT DATE: 201506
